FAERS Safety Report 10871760 (Version 1)
Quarter: 2015Q1

REPORT INFORMATION
  Report Type: Spontaneous
  Country: US (occurrence: US)
  Receive Date: 20150226
  Receipt Date: 20150226
  Transmission Date: 20150721
  Serious: No
  Sender: FDA-Public Use
  Company Number: US-MYLANLABS-2014M1004050

PATIENT
  Sex: Female
  Weight: 53.52 kg

DRUGS (5)
  1. METOPROLOL TARTRATE TABLETS USP [Suspect]
     Active Substance: METOPROLOL TARTRATE
     Indication: HEART RATE IRREGULAR
     Dosage: 25 MG, BID
  2. METOPROLOL TARTRATE TABLETS USP [Suspect]
     Active Substance: METOPROLOL TARTRATE
     Indication: CARDIAC DISORDER
     Dosage: 25 MG, BID
  3. METOPROLOL TARTRATE TABLETS USP [Suspect]
     Active Substance: METOPROLOL TARTRATE
     Indication: CARDIAC DISORDER
     Dosage: 25 MG, BID
     Route: 048
     Dates: start: 2011
  4. METOPROLOL TARTRATE TABLETS USP [Suspect]
     Active Substance: METOPROLOL TARTRATE
     Indication: HEART RATE IRREGULAR
     Dosage: 25 MG, BID
     Route: 048
     Dates: start: 2011
  5. ASPIRIN. [Concomitant]
     Active Substance: ASPIRIN
     Dosage: 350 MG, UNK

REACTIONS (3)
  - Enterobiasis [Recovered/Resolved]
  - Wrong technique in drug usage process [Not Recovered/Not Resolved]
  - Renal cyst [Not Recovered/Not Resolved]

NARRATIVE: CASE EVENT DATE: 2011
